FAERS Safety Report 26005492 (Version 1)
Quarter: 2025Q4

REPORT INFORMATION
  Report Type: Report from Study
  Country: CA (occurrence: CA)
  Receive Date: 20251106
  Receipt Date: 20251106
  Transmission Date: 20260117
  Serious: Yes (Other)
  Sender: TEVA
  Company Number: CA-TEVA-VS-3388639

PATIENT
  Age: 67 Year
  Sex: Male

DRUGS (3)
  1. LACTULOSE [Suspect]
     Active Substance: LACTULOSE
     Indication: Product used for unknown indication
     Route: 065
  2. RENFLEXIS [Suspect]
     Active Substance: INFLIXIMAB-ABDA
     Indication: Crohn^s disease
     Dosage: RENFLEXIS SINGLE USE VIAL, DOSE FORM: POWDER FOR SOLUTION INTRAVENOUS
     Route: 042
  3. RENFLEXIS [Suspect]
     Active Substance: INFLIXIMAB-ABDA
     Indication: Crohn^s disease
     Route: 042

REACTIONS (8)
  - Pneumonia [Unknown]
  - Headache [Unknown]
  - Tremor [Unknown]
  - Off label use [Unknown]
  - Balance disorder [Unknown]
  - Hepatic failure [Unknown]
  - Nausea [Unknown]
  - Fatigue [Unknown]
